FAERS Safety Report 10963116 (Version 1)
Quarter: 2015Q1

REPORT INFORMATION
  Report Type: Spontaneous
  Country: US (occurrence: US)
  Receive Date: 20150327
  Receipt Date: 20150327
  Transmission Date: 20150721
  Serious: No
  Sender: FDA-Public Use
  Company Number: US-ASTRAZENECA-2015SE25914

PATIENT
  Age: 849 Month
  Sex: Male
  Weight: 90.7 kg

DRUGS (6)
  1. LANTUS [Concomitant]
     Active Substance: INSULIN GLARGINE
     Indication: DIABETES MELLITUS
  2. PULMICORT FLEXHALER [Suspect]
     Active Substance: BUDESONIDE
     Indication: OBSTRUCTIVE AIRWAYS DISORDER
     Dosage: 180 UG, 1 PUFF, TWO TIMES A DAY
     Route: 055
     Dates: start: 201412
  3. NOVALOG [Concomitant]
     Indication: DIABETES MELLITUS
  4. OMEPRAZOLE. [Suspect]
     Active Substance: OMEPRAZOLE
     Indication: EROSIVE OESOPHAGITIS
     Route: 048
  5. ARMOUR [Concomitant]
     Indication: THYROID DISORDER
  6. GUAFENISEN OTC [Concomitant]
     Indication: PRODUCTIVE COUGH

REACTIONS (3)
  - Respiratory tract infection [Recovered/Resolved with Sequelae]
  - Increased bronchial secretion [Unknown]
  - Intentional product misuse [Not Recovered/Not Resolved]

NARRATIVE: CASE EVENT DATE: 201412
